FAERS Safety Report 9030513 (Version 3)
Quarter: 2013Q1

REPORT INFORMATION
  Report Type: Report from Study
  Country: US (occurrence: US)
  Receive Date: 20130122
  Receipt Date: 20130304
  Transmission Date: 20140127
  Serious: No
  Sender: FDA-Public Use
  Company Number: US-VERTEX PHARMACEUTICALS INC.-2013-000893

PATIENT
  Age: 45 None
  Sex: Male
  Weight: 86 kg

DRUGS (3)
  1. VX-950 (TELAPREVIR) [Suspect]
     Indication: HEPATITIS C
     Dosage: 750 MG, TID
     Route: 048
     Dates: start: 20130104
  2. PEGASYS [Suspect]
     Indication: HEPATITIS C
     Dosage: 180 ?G, QW
     Route: 058
     Dates: start: 20130105
  3. RIBAVIRIN [Suspect]
     Indication: HEPATITIS C
     Dosage: 600 MG, BID
     Route: 048
     Dates: start: 20130104

REACTIONS (8)
  - Dyspnoea [Not Recovered/Not Resolved]
  - Influenza like illness [Recovered/Resolved]
  - Abdominal pain upper [Recovered/Resolved]
  - Malaise [Not Recovered/Not Resolved]
  - Injection site rash [Recovered/Resolved]
  - Fatigue [Not Recovered/Not Resolved]
  - Rash erythematous [Recovered/Resolved]
  - Dysgeusia [Recovered/Resolved]
